FAERS Safety Report 7640116-X (Version None)
Quarter: 2011Q3

REPORT INFORMATION
  Report Type: 
  Country: None (occurrence: None)
  Receive Date: 20110728
  Receipt Date: 20110708
  Transmission Date: 20111222
  Serious: No
  Sender: FDA-Public Use
  Company Number: US-BAYER-2011-060371

PATIENT
  Age: 84 Year
  Sex: Female
  Weight: 86 kg

DRUGS (7)
  1. SYNTHROID [Concomitant]
  2. TRICOR [Concomitant]
  3. ALEVE (CAPLET) [Suspect]
     Indication: PAIN
     Dosage: 1 DF, QD
     Route: 048
     Dates: start: 20110507, end: 20110708
  4. ASPIRIN [Concomitant]
     Dosage: 1 DF, BID
     Dates: start: 20110507
  5. PROPRANOLOL [Concomitant]
  6. INDERAL [Concomitant]
  7. DYAZIDE [Concomitant]

REACTIONS (1)
  - ABDOMINAL DISCOMFORT [None]
